FAERS Safety Report 12616653 (Version 1)
Quarter: 2016Q3

REPORT INFORMATION
  Report Type: Spontaneous
  Country: US (occurrence: US)
  Receive Date: 20160802
  Receipt Date: 20160802
  Transmission Date: 20161109
  Serious: No
  Sender: FDA-Public Use
  Company Number: US-ELI_LILLY_AND_COMPANY-US201607013588

PATIENT
  Sex: Male

DRUGS (4)
  1. HUMALOG [Concomitant]
     Active Substance: INSULIN LISPRO
     Dosage: 55-60 UNITS AS BASAL
     Route: 058
  2. HUMALOG [Suspect]
     Active Substance: INSULIN LISPRO
     Dosage: BOLUS SLIDING SCALE 1/2 U FOR EVERY 3 G OF CARBOHYDRATE
     Route: 065
     Dates: start: 20160726
  3. HUMALOG [Concomitant]
     Active Substance: INSULIN LISPRO
     Dosage: BOLUS SLIDING SCALE 1 U PER 3 G OF CARBOHYDRATE
  4. HUMALOG [Suspect]
     Active Substance: INSULIN LISPRO
     Indication: DIABETES MELLITUS
     Dosage: BOLUS SLIDING SCALE 1/2 U FOR EVERY 3 G OF CARBOHYDRATE
     Route: 065
     Dates: start: 20160725, end: 20160725

REACTIONS (2)
  - Blood glucose increased [Recovered/Resolved]
  - Blood glucose increased [Unknown]

NARRATIVE: CASE EVENT DATE: 20160725
